FAERS Safety Report 4613271-3 (Version None)
Quarter: 2005Q1

REPORT INFORMATION
  Report Type: 
  Country: None (occurrence: None)
  Receive Date: 20050315
  Receipt Date: 20050301
  Transmission Date: 20050727
  Serious: No
  Sender: FDA-Public Use
  Company Number: DSA_26014_2005

PATIENT
  Sex: Male

DRUGS (1)
  1. LORAZEPAM [Suspect]

REACTIONS (1)
  - AMNESIA [None]
